FAERS Safety Report 21287214 (Version 8)
Quarter: 2023Q4

REPORT INFORMATION
  Report Type: Spontaneous
  Country: US (occurrence: US)
  Receive Date: 20220902
  Receipt Date: 20231120
  Transmission Date: 20240109
  Serious: Yes (Hospitalization, Other)
  Sender: FDA-Public Use
  Company Number: US-PFIZER INC-PV202200031912

PATIENT
  Age: 78 Year
  Sex: Female
  Weight: 81.633 kg

DRUGS (7)
  1. TRAZIMERA [Suspect]
     Active Substance: TRASTUZUMAB-QYYP
     Indication: Breast cancer female
     Dosage: 705 MG (INJECT - 21 DAYS)
     Dates: start: 20220826
  2. TRAZIMERA [Suspect]
     Active Substance: TRASTUZUMAB-QYYP
     Dosage: UNK, MONTHLY (ONCE PER MONTH)
     Dates: start: 20220826
  3. TRAZIMERA [Suspect]
     Active Substance: TRASTUZUMAB-QYYP
     Dosage: 705 MG
  4. TRAZIMERA [Suspect]
     Active Substance: TRASTUZUMAB-QYYP
     Dosage: 420 MG
  5. TRAZIMERA [Suspect]
     Active Substance: TRASTUZUMAB-QYYP
     Dosage: 150 MG
  6. PERTUZUMAB [Concomitant]
     Active Substance: PERTUZUMAB
     Dosage: UNK
     Dates: start: 202208
  7. PACLITAXEL [Concomitant]
     Active Substance: PACLITAXEL
     Dosage: UNK
     Dates: start: 202208

REACTIONS (12)
  - Breast cancer [Recovered/Resolved]
  - Mastectomy [Unknown]
  - Radiotherapy [Unknown]
  - Abdominal hernia [Unknown]
  - Illness [Recovering/Resolving]
  - Osteoarthritis [Unknown]
  - Dysstasia [Unknown]
  - Malaise [Recovering/Resolving]
  - Sneezing [Unknown]
  - Secretion discharge [Unknown]
  - Hypersensitivity [Unknown]
  - Vomiting [Recovering/Resolving]

NARRATIVE: CASE EVENT DATE: 20220101
